FAERS Safety Report 5330583-9 (Version None)
Quarter: 2007Q2

REPORT INFORMATION
  Report Type: 
  Country: None (occurrence: None)
  Receive Date: 20070516
  Receipt Date: 20070504
  Transmission Date: 20071010
  Serious: Yes (Death, Hospitalization)
  Sender: FDA-Public Use
  Company Number: 2006EU000040

PATIENT
  Age: 56 Year
  Sex: Male

DRUGS (11)
  1. TACROLIMUS [Suspect]
     Indication: LIVER TRANSPLANT
     Dosage: 3 MG, BID, ORAL
     Route: 048
     Dates: start: 20051111
  2. MYCOPHENOLATE MOFETIL [Suspect]
     Indication: LIVER TRANSPLANT
     Dosage: 1000 MG, BID, IV NOS, 500 MG, BID ORAL
     Route: 042
     Dates: start: 20051107, end: 20051111
  3. MYCOPHENOLATE MOFETIL [Suspect]
     Indication: LIVER TRANSPLANT
     Dosage: 1000 MG, BID, IV NOS, 500 MG, BID ORAL
     Route: 042
     Dates: start: 20051112, end: 20051116
  4. DACLIZUMAB(DACLIZUMAB) [Suspect]
     Indication: LIVER TRANSPLANT
     Dosage: 100 MG, UID/QD, IV NOS
     Route: 042
     Dates: start: 20051107, end: 20051114
  5. PREDNISOLONE [Suspect]
     Indication: LIVER TRANSPLANT
     Dosage: 40 MG, UID/QD
     Dates: start: 20051107
  6. FUROSEMIDE [Concomitant]
  7. INSULIN (INSULIN) [Concomitant]
  8. PANTOPRAZOLE SODIUM [Concomitant]
  9. MEROPENEM (MEROPENEM) [Concomitant]
  10. LINEZOLID [Concomitant]
  11. VORICONAZOLE (VORICONAZOLE) [Concomitant]

REACTIONS (7)
  - ACUTE RESPIRATORY DISTRESS SYNDROME [None]
  - BRONCHOPULMONARY ASPERGILLOSIS [None]
  - FUNGAL INFECTION [None]
  - GENERAL PHYSICAL HEALTH DETERIORATION [None]
  - PNEUMONIA [None]
  - TRACHEAL DISORDER [None]
  - TRACHEAL ULCER [None]
